FAERS Safety Report 6690589-4 (Version None)
Quarter: 2010Q2

REPORT INFORMATION
  Report Type: 
  Country: None (occurrence: None)
  Receive Date: 20100421
  Receipt Date: 20100414
  Transmission Date: 20101027
  Serious: Yes (Disabling)
  Sender: FDA-Public Use
  Company Number: B0621418A

PATIENT
  Sex: Male

DRUGS (7)
  1. PAXIL [Suspect]
     Indication: DEPRESSIVE SYMPTOM
     Dosage: 10MG PER DAY
     Route: 048
     Dates: end: 20080806
  2. ARTANE [Concomitant]
     Indication: TREMOR
     Dosage: 2MG PER DAY
     Route: 048
  3. ALMARL [Concomitant]
     Indication: TREMOR
     Dosage: 10MG PER DAY
     Route: 048
  4. ZOLOFT [Concomitant]
     Indication: DEPRESSIVE SYMPTOM
     Dosage: 50MG PER DAY
     Route: 048
     Dates: start: 20080605, end: 20090803
  5. MAGMITT [Concomitant]
     Indication: CONSTIPATION
     Dosage: 1500MG PER DAY
     Route: 048
  6. SELBEX [Concomitant]
     Indication: CONSTIPATION
     Dosage: 150MG PER DAY
     Route: 048
  7. LIPITOR [Concomitant]
     Dosage: 10MG PER DAY
     Route: 048

REACTIONS (3)
  - MUSCLE RIGIDITY [None]
  - PARKINSONISM [None]
  - TREMOR [None]
